FAERS Safety Report 11576090 (Version 2)
Quarter: 2015Q4

REPORT INFORMATION
  Report Type: Spontaneous
  Country: US (occurrence: US)
  Receive Date: 20150930
  Receipt Date: 20151104
  Transmission Date: 20160304
  Serious: Yes (Disabling, Other)
  Sender: FDA-Public Use
  Company Number: US-ASTELLAS-2015US035465

PATIENT
  Age: 64 Year
  Sex: Male

DRUGS (3)
  1. TARCEVA [Suspect]
     Active Substance: ERLOTINIB HYDROCHLORIDE
     Indication: NASAL CAVITY CANCER
  2. TARCEVA [Suspect]
     Active Substance: ERLOTINIB HYDROCHLORIDE
     Indication: DERMATITIS
  3. TARCEVA [Suspect]
     Active Substance: ERLOTINIB HYDROCHLORIDE
     Indication: HEAD AND NECK CANCER
     Dosage: 3 DF (25 MG), ONCE DAILY
     Route: 048

REACTIONS (3)
  - Fatigue [Unknown]
  - Blindness [Unknown]
  - Rash pruritic [Unknown]
